FAERS Safety Report 25475309 (Version 1)
Quarter: 2025Q2

REPORT INFORMATION
  Report Type: Spontaneous
  Country: US (occurrence: US)
  Receive Date: 20250624
  Receipt Date: 20250624
  Transmission Date: 20250717
  Serious: Yes (Other)
  Sender: FRESENIUS MEDICAL CARE
  Company Number: US-FMCRTG-FMC-2505-000863

PATIENT
  Age: 77 Year
  Sex: Female
  Weight: 63 kg

DRUGS (30)
  1. DELFLEX [Suspect]
     Active Substance: CALCIUM CHLORIDE\DEXTROSE\MAGNESIUM CHLORIDE\SODIUM CHLORIDE\SODIUM LACTATE
     Indication: End stage renal disease
     Route: 033
  2. CINNAMON PLUS CHROMIUM [Concomitant]
  3. NORCO [Concomitant]
     Active Substance: ACETAMINOPHEN\HYDROCODONE BITARTRATE
  4. ACETAMINOPHEN [Concomitant]
     Active Substance: ACETAMINOPHEN
  5. ALBUTEROL SULFATE [Concomitant]
     Active Substance: ALBUTEROL SULFATE
  6. ALBUTEROL\IPRATROPIUM [Concomitant]
     Active Substance: ALBUTEROL\IPRATROPIUM
  7. ASPIRIN [Concomitant]
     Active Substance: ASPIRIN
  8. CALCIUM ACETATE [Concomitant]
     Active Substance: CALCIUM ACETATE
  9. CEPHALEXIN [Concomitant]
     Active Substance: CEPHALEXIN
  10. CINACALCET [Concomitant]
     Active Substance: CINACALCET
  11. CLOBETASOL PROPIONATE [Concomitant]
     Active Substance: CLOBETASOL PROPIONATE
  12. ASCORBIC ACID\CRANBERRY [Concomitant]
     Active Substance: ASCORBIC ACID\CRANBERRY
  13. CYCLOBENZAPRINE [Concomitant]
     Active Substance: CYCLOBENZAPRINE
  14. ESTRADIOL [Concomitant]
     Active Substance: ESTRADIOL
  15. TETRAFERRIC TRICITRATE DECAHYDRATE [Concomitant]
     Active Substance: TETRAFERRIC TRICITRATE DECAHYDRATE
  16. GENTAMICIN [Concomitant]
     Active Substance: GENTAMICIN
  17. MAGNESIUM GLUCONATE [Concomitant]
     Active Substance: MAGNESIUM GLUCONATE
  18. MEGESTROL [Concomitant]
     Active Substance: MEGESTROL
  19. METHOXY POLYETHYLENE GLYCOL-EPOETIN BETA [Concomitant]
     Active Substance: METHOXY POLYETHYLENE GLYCOL-EPOETIN BETA
  20. MIRCERA [Concomitant]
     Active Substance: METHOXY POLYETHYLENE GLYCOL-EPOETIN BETA
  21. MIDODRINE [Concomitant]
     Active Substance: MIDODRINE
  22. MONTELUKAST [Concomitant]
     Active Substance: MONTELUKAST
  23. OMEPRAZOLE [Concomitant]
     Active Substance: OMEPRAZOLE
  24. OXYBUTYNIN [Concomitant]
     Active Substance: OXYBUTYNIN
  25. POTASSIUM CHLORIDE [Concomitant]
     Active Substance: POTASSIUM CHLORIDE
  26. ROSUVASTATIN [Concomitant]
     Active Substance: ROSUVASTATIN
  27. SEVELAMER CARBONATE [Concomitant]
     Active Substance: SEVELAMER CARBONATE
  28. TAMSULOSIN [Concomitant]
     Active Substance: TAMSULOSIN
  29. LIDOCAINE [Concomitant]
     Active Substance: LIDOCAINE
  30. INSULIN GLARGINE [Concomitant]
     Active Substance: INSULIN GLARGINE

REACTIONS (2)
  - Peritonitis [Unknown]
  - Hernia [Unknown]

NARRATIVE: CASE EVENT DATE: 20250519
